FAERS Safety Report 15983493 (Version 1)
Quarter: 2019Q1

REPORT INFORMATION
  Report Type: Spontaneous
  Country: DE (occurrence: DE)
  Receive Date: 20190220
  Receipt Date: 20190220
  Transmission Date: 20190418
  Serious: Yes (Other)
  Sender: FDA-Public Use
  Company Number: DE-TEVA-2019-DE-1013783

PATIENT
  Age: 68 Year
  Sex: Male
  Weight: 80 kg

DRUGS (1)
  1. PANTOPRAZOL 40MG [Suspect]
     Active Substance: PANTOPRAZOLE SODIUM
     Dosage: TW 20, TW 40 MG
     Route: 048
     Dates: start: 2015

REACTIONS (3)
  - Arrhythmia [Recovering/Resolving]
  - Nausea [Recovering/Resolving]
  - Syncope [Recovering/Resolving]

NARRATIVE: CASE EVENT DATE: 2015
